FAERS Safety Report 7755871-8 (Version None)
Quarter: 2011Q3

REPORT INFORMATION
  Report Type: 
  Country: None (occurrence: None)
  Receive Date: 20110916
  Receipt Date: 20110908
  Transmission Date: 20111222
  Serious: Yes (Hospitalization)
  Sender: FDA-Public Use
  Company Number: FR-CEPHALON-2011004827

PATIENT
  Sex: Female

DRUGS (2)
  1. MABTHERA [Suspect]
     Indication: B-CELL LYMPHOMA
     Dates: start: 20110628, end: 20110628
  2. TREANDA [Suspect]
     Indication: B-CELL LYMPHOMA
     Route: 041
     Dates: start: 20110628, end: 20110628

REACTIONS (1)
  - ISCHAEMIC STROKE [None]
